FAERS Safety Report 4362273-3 (Version None)
Quarter: 2004Q2

REPORT INFORMATION
  Report Type: 
  Country: None (occurrence: None)
  Receive Date: 20040517
  Receipt Date: 20040505
  Transmission Date: 20050107
  Serious: Yes (Hospitalization)
  Sender: FDA-Public Use
  Company Number: US-JNJFOC-20040501139

PATIENT
  Age: 71 Year
  Sex: Female

DRUGS (7)
  1. DURAGESIC [Suspect]
     Indication: PAIN
     Dosage: 75 UG/HR, TRANSDERMAL
     Dates: start: 20031201, end: 20040101
  2. LORTAB [Suspect]
     Indication: PAIN
     Dosage: ORAL
     Route: 048
     Dates: end: 20040101
  3. DARVOCET [Suspect]
     Indication: ARTHRITIS
     Dosage: 4 IN 24 HOUR, ORAL
     Route: 048
     Dates: end: 20040101
  4. GLUCOPHAGE (METFORMIN HYDROCHLORIDE) TABLETS [Concomitant]
  5. SYNTHROID (LEVOTHYROXINE SODIUM) TABLETS [Concomitant]
  6. TAGAMET [Concomitant]
  7. DITROPAN [Concomitant]

REACTIONS (3)
  - FALL [None]
  - MEDICATION ERROR [None]
  - PHARMACEUTICAL PRODUCT COMPLAINT [None]
